FAERS Safety Report 9958693 (Version 1)
Quarter: 2014Q1

REPORT INFORMATION
  Report Type: Spontaneous
  Country: US (occurrence: None)
  Receive Date: 20140228
  Receipt Date: 20140228
  Transmission Date: 20141002
  Serious: Yes (Death)
  Sender: FDA-Public Use
  Company Number: None

PATIENT
  Age: 67 Year
  Sex: Female

DRUGS (1)
  1. TAFINLAR 75 MG CAPSULES GLAXOSMITHKLINE [Suspect]
     Indication: MALIGNANT MELANOMA
     Dosage: TWO CAPSULES TWICE DAILY BY MOUTH
     Route: 048
     Dates: start: 20140129, end: 20140219

REACTIONS (3)
  - Adverse event [None]
  - Malignant melanoma [None]
  - Malignant neoplasm progression [None]
